FAERS Safety Report 4947847-0 (Version None)
Quarter: 2006Q1

REPORT INFORMATION
  Report Type: 
  Country: None (occurrence: None)
  Receive Date: 20060317
  Receipt Date: 20060317
  Transmission Date: 20060701
  Serious: Yes (Hospitalization)
  Sender: FDA-Public Use
  Company Number: None

PATIENT
  Sex: Male
  Weight: 57.1532 kg

DRUGS (2)
  1. OXYBUTYNIN CHLORIDE [Suspect]
     Indication: HAEMATURIA
     Dosage: 5MG  1 TABLET  TID  PO
     Route: 048
     Dates: start: 20050810, end: 20060314
  2. OXYBUTYNIN CHLORIDE [Suspect]
     Indication: MICTURITION DISORDER
     Dosage: 5MG  1 TABLET  TID  PO
     Route: 048
     Dates: start: 20050810, end: 20060314

REACTIONS (3)
  - AGITATION [None]
  - MENTAL STATUS CHANGES [None]
  - NERVOUSNESS [None]
